FAERS Safety Report 23546145 (Version 1)
Quarter: 2024Q1

REPORT INFORMATION
  Report Type: Spontaneous
  Country: JP (occurrence: JP)
  Receive Date: 20240220
  Receipt Date: 20240220
  Transmission Date: 20240410
  Serious: Yes (Other)
  Sender: FDA-Public Use
  Company Number: JP-MSD-2010JPN000622J

PATIENT
  Age: 69 Year
  Sex: Male

DRUGS (8)
  1. ZOLINZA [Suspect]
     Active Substance: VORINOSTAT
     Indication: Cutaneous T-cell lymphoma stage II
     Dosage: 400 MILLIGRAM, QD
     Route: 048
     Dates: start: 20200925, end: 20201021
  2. ZOLINZA [Suspect]
     Active Substance: VORINOSTAT
     Dosage: 300 MILLIGRAM, QD
     Route: 048
     Dates: start: 20201022, end: 20201104
  3. ZOLINZA [Suspect]
     Active Substance: VORINOSTAT
     Dosage: 300 MILLIGRAM,5 DAYS ADMINISTRATION, 2 DAYS OFF
     Route: 048
     Dates: start: 20201105, end: 2021
  4. ZOLINZA [Suspect]
     Active Substance: VORINOSTAT
     Dosage: UNK
     Route: 048
     Dates: start: 2021, end: 20210603
  5. CLOBETASOL PROPIONATE [Concomitant]
     Active Substance: CLOBETASOL PROPIONATE
     Indication: Cutaneous T-cell lymphoma stage II
     Dosage: UNK
     Route: 003
  6. NIFEDIPINE [Concomitant]
     Active Substance: NIFEDIPINE
     Dosage: UNK
     Route: 065
  7. PRAVASTATIN SODIUM [Concomitant]
     Active Substance: PRAVASTATIN SODIUM
     Dosage: UNK
     Route: 065
  8. ALLOPURINOL [Concomitant]
     Active Substance: ALLOPURINOL
     Dosage: UNK
     Route: 065

REACTIONS (3)
  - Cardiac dysfunction [Recovered/Resolved]
  - Renal impairment [Recovered/Resolved]
  - Platelet count decreased [Recovered/Resolved]

NARRATIVE: CASE EVENT DATE: 20201003
